FAERS Safety Report 26095674 (Version 1)
Quarter: 2025Q4

REPORT INFORMATION
  Report Type: Spontaneous
  Country: US (occurrence: US)
  Receive Date: 20251127
  Receipt Date: 20251127
  Transmission Date: 20260118
  Serious: No
  Sender: LEO PHARM
  Company Number: US-LEO Pharma-384482

PATIENT
  Age: 42 Year
  Sex: Female

DRUGS (2)
  1. ADBRY [Suspect]
     Active Substance: TRALOKINUMAB-LDRM
     Indication: Eczema
     Dosage: 600 MG ON DAY 1; TREATMENT REPORTED AS ONGOING
  2. ADBRY [Suspect]
     Active Substance: TRALOKINUMAB-LDRM
     Indication: Eczema
     Dosage: TREATMENT REPORTED AS ONGOING
     Dates: start: 20251111

REACTIONS (2)
  - Discomfort [Unknown]
  - Pruritus [Unknown]
